FAERS Safety Report 16905724 (Version 2)
Quarter: 2022Q2

REPORT INFORMATION
  Report Type: Spontaneous
  Country: US (occurrence: US)
  Receive Date: 20191010
  Receipt Date: 20220504
  Transmission Date: 20220721
  Serious: Yes (Other)
  Sender: FDA-Public Use
  Company Number: US-BIOMARINAP-US-2019-126161

PATIENT
  Age: 18 Year
  Sex: Male
  Weight: 120 kg

DRUGS (3)
  1. PALYNZIQ [Suspect]
     Active Substance: PEGVALIASE-PQPZ
     Indication: Phenylketonuria
     Dosage: 10 MILLIGRAM, SINGLE
     Route: 058
     Dates: start: 20191006, end: 20191006
  2. PALYNZIQ [Suspect]
     Active Substance: PEGVALIASE-PQPZ
     Dosage: 2.5 MILLIGRAM
     Route: 058
     Dates: start: 20190628
  3. ALBUTEROL [Concomitant]
     Active Substance: ALBUTEROL
     Indication: Product used for unknown indication

REACTIONS (6)
  - Anaphylactic reaction [Recovering/Resolving]
  - Dyspnoea [Recovering/Resolving]
  - Flushing [Recovering/Resolving]
  - Pallor [Recovering/Resolving]
  - Vision blurred [Recovering/Resolving]
  - Presyncope [Recovering/Resolving]

NARRATIVE: CASE EVENT DATE: 20191006
